FAERS Safety Report 5592654-1 (Version None)
Quarter: 2008Q1

REPORT INFORMATION
  Report Type: 
  Country: None (occurrence: None)
  Receive Date: 20080115
  Receipt Date: 20080108
  Transmission Date: 20080703
  Serious: Yes (Hospitalization)
  Sender: FDA-Public Use
  Company Number: US-BOEHRINGER INGELHEIM PHARMACEUTICALS, INC.-2007-BP-21409BP

PATIENT
  Sex: Female

DRUGS (21)
  1. AGGRENOX [Suspect]
     Indication: ANTICOAGULANT THERAPY
     Dates: start: 20070301, end: 20070319
  2. AGGRENOX [Suspect]
     Indication: CARDIOMYOPATHY
  3. COREG [Concomitant]
  4. COZAAR [Concomitant]
  5. FEMARA [Concomitant]
  6. ADVAIR DISKUS 100/50 [Concomitant]
  7. COLCHINICAN [Concomitant]
  8. NEXIUM [Concomitant]
  9. FOLTEX [Concomitant]
  10. UTRAM [Concomitant]
  11. LASIX [Concomitant]
  12. SINGULAIR [Concomitant]
     Indication: ASTHMA
  13. SINGULAIR [Concomitant]
     Indication: MULTIPLE ALLERGIES
  14. KLOR-CON [Concomitant]
     Indication: BLOOD POTASSIUM DECREASED
  15. REGLAN [Concomitant]
  16. BENADRYL [Concomitant]
  17. ZOLOFT [Concomitant]
  18. ALLEGRA [Concomitant]
  19. NEURONTIN [Concomitant]
  20. FERROUS SULFATE [Concomitant]
  21. MAXALT [Concomitant]
     Indication: MIGRAINE

REACTIONS (5)
  - DUODENITIS [None]
  - GASTRIC HAEMORRHAGE [None]
  - GASTRITIS [None]
  - HAEMATEMESIS [None]
  - HAEMATOCHEZIA [None]
